FAERS Safety Report 20247221 (Version 1)
Quarter: 2021Q4

REPORT INFORMATION
  Report Type: Spontaneous
  Country: PT (occurrence: PT)
  Receive Date: 20211229
  Receipt Date: 20211229
  Transmission Date: 20220304
  Serious: Yes (Hospitalization, Disabling)
  Sender: FDA-Public Use
  Company Number: PT-BALDACCIPT-2021046

PATIENT
  Age: 72 Year
  Sex: Male

DRUGS (1)
  1. INDAPAMIDE [Suspect]
     Active Substance: INDAPAMIDE
     Indication: Metabolic syndrome
     Dosage: UNK

REACTIONS (4)
  - Gait disturbance [Recovered/Resolved]
  - Confusional state [Recovered/Resolved]
  - Hyponatraemia [Recovered/Resolved]
  - Aggression [Recovered/Resolved]
